FAERS Safety Report 5400918-7 (Version None)
Quarter: 2007Q3

REPORT INFORMATION
  Report Type: 
  Country: None (occurrence: None)
  Receive Date: 20070730
  Receipt Date: 20061019
  Transmission Date: 20080115
  Serious: No
  Sender: FDA-Public Use
  Company Number: A0624211A

PATIENT
  Age: 5 Week
  Sex: Male

DRUGS (1)
  1. ZANTAC 150 [Suspect]
     Dosage: .7ML TWICE PER DAY
     Route: 048
     Dates: start: 20061012

REACTIONS (1)
  - ACCIDENTAL EXPOSURE [None]
